FAERS Safety Report 17566230 (Version 2)
Quarter: 2020Q2

REPORT INFORMATION
  Report Type: Spontaneous
  Country: DE (occurrence: DE)
  Receive Date: 20200320
  Receipt Date: 20200513
  Transmission Date: 20200713
  Serious: Yes (Hospitalization, Other)
  Sender: FDA-Public Use
  Company Number: NVSC2020DE078884

PATIENT
  Sex: Male
  Weight: 95 kg

DRUGS (4)
  1. PEMBROLIZUMAB. [Concomitant]
     Active Substance: PEMBROLIZUMAB
     Indication: NON-SMALL CELL LUNG CANCER
     Dosage: 200 MG
     Route: 042
     Dates: start: 20191015, end: 20191217
  2. CARBOPLATIN. [Suspect]
     Active Substance: CARBOPLATIN
     Indication: NON-SMALL CELL LUNG CANCER
     Dosage: 750 MG
     Route: 042
     Dates: start: 20191015, end: 20191015
  3. PEMETREXED. [Suspect]
     Active Substance: PEMETREXED
     Indication: NON-SMALL CELL LUNG CANCER
     Dosage: 870 MG
     Route: 042
     Dates: start: 20191112
  4. PEMETREXED. [Suspect]
     Active Substance: PEMETREXED
     Dosage: 640 MG, QD
     Route: 042
     Dates: start: 20191217, end: 20191217

REACTIONS (2)
  - Anaemia [Unknown]
  - Pancytopenia [Recovered/Resolved]

NARRATIVE: CASE EVENT DATE: 20191122
